FAERS Safety Report 20730098 (Version 2)
Quarter: 2022Q3

REPORT INFORMATION
  Report Type: Spontaneous
  Country: US (occurrence: US)
  Receive Date: 20220420
  Receipt Date: 20220707
  Transmission Date: 20221027
  Serious: No
  Sender: FDA-Public Use
  Company Number: US-PFIZER INC-202200456400

PATIENT
  Age: 36 Year
  Sex: Female

DRUGS (1)
  1. IBRANCE [Suspect]
     Active Substance: PALBOCICLIB
     Dosage: 125 MG, CYCLIC (DAILY FOR 3 WEEKS THEN OFF FOR 1 WEEK, THEN REPEAT)
     Route: 048
     Dates: start: 20220222

REACTIONS (3)
  - Chills [Not Recovered/Not Resolved]
  - Fatigue [Unknown]
  - Somnolence [Unknown]
